FAERS Safety Report 14993171 (Version 1)
Quarter: 2018Q2

REPORT INFORMATION
  Report Type: Spontaneous
  Country: GR (occurrence: GR)
  Receive Date: 20180610
  Receipt Date: 20180610
  Transmission Date: 20180711
  Serious: Yes (Other)
  Sender: FDA-Public Use
  Company Number: PHHY2018GR016095

PATIENT

DRUGS (1)
  1. ILARIS [Suspect]
     Active Substance: CANAKINUMAB
     Indication: INCLUSION BODY MYOSITIS
     Dosage: 150 MG, (4 BIMONTHLY, THEN MONTHLY)
     Route: 058

REACTIONS (3)
  - Product use in unapproved indication [Unknown]
  - Inclusion body myositis [Unknown]
  - Condition aggravated [Unknown]
